APPROVED DRUG PRODUCT: BENDAMUSTINE HYDROCHLORIDE
Active Ingredient: BENDAMUSTINE HYDROCHLORIDE
Strength: 25MG/VIAL
Dosage Form/Route: POWDER;INTRAVENOUS
Application: A204230 | Product #001
Applicant: APOTEX INC
Approved: Jun 5, 2023 | RLD: No | RS: No | Type: DISCN